FAERS Safety Report 7326956-5 (Version None)
Quarter: 2011Q1

REPORT INFORMATION
  Report Type: 
  Country: None (occurrence: None)
  Receive Date: 20110302
  Receipt Date: 20100428
  Transmission Date: 20110831
  Serious: No
  Sender: FDA-Public Use
  Company Number: US-PFIZER INC-2010053612

PATIENT
  Age: 75 Year
  Sex: Female

DRUGS (1)
  1. DILANTIN-125 [Suspect]

REACTIONS (1)
  - NIGHTMARE [None]
